FAERS Safety Report 4433586-1 (Version None)
Quarter: 2004Q3

REPORT INFORMATION
  Report Type: 
  Country: None (occurrence: None)
  Receive Date: 20040824
  Receipt Date: 20040809
  Transmission Date: 20050211
  Serious: Yes (Other)
  Sender: FDA-Public Use
  Company Number: 202853

PATIENT
  Sex: Female

DRUGS (1)
  1. AVONEX [Suspect]
     Indication: MULTIPLE SCLEROSIS
     Dates: end: 20040201

REACTIONS (6)
  - BLADDER DISORDER [None]
  - CALCIUM DEFICIENCY [None]
  - DEPRESSION [None]
  - DYSPHAGIA [None]
  - FATIGUE [None]
  - PARALYSIS [None]
